FAERS Safety Report 15669132 (Version 1)
Quarter: 2018Q4

REPORT INFORMATION
  Report Type: Spontaneous
  Country: US (occurrence: US)
  Receive Date: 20181129
  Receipt Date: 20181129
  Transmission Date: 20190205
  Serious: No
  Sender: FDA-Public Use
  Company Number: US-BRISTOL-MYERS SQUIBB COMPANY-BMS-2018-111516

PATIENT
  Age: 57 Year
  Sex: Male

DRUGS (2)
  1. ELIQUIS [Suspect]
     Active Substance: APIXABAN
     Indication: DEEP VEIN THROMBOSIS
     Route: 065
  2. ELIQUIS [Suspect]
     Active Substance: APIXABAN
     Indication: PULMONARY EMBOLISM
     Dosage: UNK
     Route: 065
     Dates: end: 201809

REACTIONS (7)
  - Blood blister [Unknown]
  - Headache [Unknown]
  - Tinnitus [Unknown]
  - Fatigue [Unknown]
  - Depression [Unknown]
  - Contusion [Unknown]
  - Irritability [Unknown]

NARRATIVE: CASE EVENT DATE: 20181124
